FAERS Safety Report 21619447 (Version 10)
Quarter: 2023Q2

REPORT INFORMATION
  Report Type: Report from Study
  Country: PT (occurrence: PT)
  Receive Date: 20221121
  Receipt Date: 20230419
  Transmission Date: 20230722
  Serious: Yes (Other)
  Sender: FDA-Public Use
  Company Number: PT-ABBVIE-4205650

PATIENT
  Age: 78 Year
  Sex: Male

DRUGS (10)
  1. CARBIDOPA\LEVODOPA [Suspect]
     Active Substance: CARBIDOPA\LEVODOPA
     Indication: Parkinson^s disease
     Dosage: 20 MG + 5 MG?FREQUENCY TEXT: MORN:13CC;MAINT:4.9CC/H;EXTRA:1CC?DRUG DISCONTINUED DATE 2022
     Route: 050
     Dates: start: 20220217, end: 2022
  2. CARBIDOPA\LEVODOPA [Suspect]
     Active Substance: CARBIDOPA\LEVODOPA
     Dosage: 20 MG + 5 MG
     Route: 050
     Dates: start: 2022
  3. CARBIDOPA\LEVODOPA [Suspect]
     Active Substance: CARBIDOPA\LEVODOPA
     Dosage: 20 MG + 5 MG?FREQUENCY TEXT: MORN:17CC;MAINT:6.1CC/H;EXTRA:3.5CC?DRUG START DATE WAS 2022
     Route: 050
  4. CARBIDOPA\LEVODOPA [Suspect]
     Active Substance: CARBIDOPA\LEVODOPA
     Dosage: 20 MG + 5 MG?FREQUENCY TEXT: MORN:17CC;MAINT:6.2CC/H;EXTRA:3.5CC?DRUG STOP DATE 2022.
     Route: 050
     Dates: start: 20221115, end: 2022
  5. BEDOZE [Concomitant]
     Indication: Product used for unknown indication
  6. LEDIAMOX [Concomitant]
     Indication: Product used for unknown indication
     Dosage: 2 TABLET?FORM STRENGTH: 125 MILLIGRAM ?FREQUENCY TEXT: 1 AT BREAKFAST + 1 AT DINNER?START DATE TE...
  7. RIVOTRIL [Concomitant]
     Active Substance: CLONAZEPAM
     Indication: Product used for unknown indication
     Dosage: 2 TABLET?FORM STRENGTH: 1 MILLIGRAM?FREQUENCY TEXT: 1 AT BREAKFAST + 1 AT BEDTIME?START DATE TEXT...
  8. ATROPINE [Concomitant]
     Active Substance: ATROPINE
     Indication: Product used for unknown indication
     Dosage: FORM STRENGTH: 10 MILLIGRAM/MILLILITERS ?FREQUENCY TEXT: 2 DROPS TO LUNCH + 1 DROP AT DINNER?STAR...
  9. ESCITALOPRAM KRKA [Concomitant]
     Indication: Product used for unknown indication
     Dosage: 1 TABLET?FORM STRENGTH: 10 MILLIGRAM?FREQUENCY TEXT: AT BREAKFAST ?START DATE TEXT: BEFORE DUODOPA
  10. CYANOCOBALAMIN\FOLIC ACID\PYRIDOXINE HYDROCHLORIDE [Concomitant]
     Active Substance: CYANOCOBALAMIN\FOLIC ACID\PYRIDOXINE HYDROCHLORIDE
     Indication: Product used for unknown indication
     Dosage: 1 TABLET?FORM STRENGTH: 5 MILLIGRAM?FREQUENCY TEXT: AT BREAKFAST ?START DATE TEXT: BEFORE DUODOPA

REACTIONS (5)
  - Weight decreased [Recovered/Resolved]
  - Stoma site hypergranulation [Recovering/Resolving]
  - Granuloma [Recovering/Resolving]
  - Stoma site discharge [Recovered/Resolved]
  - Stoma site hypergranulation [Recovering/Resolving]

NARRATIVE: CASE EVENT DATE: 20221115
